APPROVED DRUG PRODUCT: CROMOLYN SODIUM
Active Ingredient: CROMOLYN SODIUM
Strength: 10MG/ML
Dosage Form/Route: SOLUTION;INHALATION
Application: A075175 | Product #001
Applicant: ROXANE LABORATORIES INC
Approved: Sep 30, 1999 | RLD: No | RS: No | Type: DISCN